FAERS Safety Report 6035312-1 (Version None)
Quarter: 2009Q1

REPORT INFORMATION
  Report Type: 
  Country: None (occurrence: None)
  Receive Date: 20090108
  Receipt Date: 20081223
  Transmission Date: 20090719
  Serious: Yes (Other)
  Sender: FDA-Public Use
  Company Number: B0551720A

PATIENT
  Age: 43 Year
  Sex: Female

DRUGS (2)
  1. FLUTICASONE PROPIONATE  INHALER DEVICE (GENERI (FLUTICASONE PROPIONATE [Suspect]
     Indication: ASTHMA
     Dosage: INHALED
     Route: 055
  2. RITONAVIR INHALER DEVICE (RITONAVIR) [Suspect]
     Dosage: INHALED
     Route: 055

REACTIONS (6)
  - AMYOTROPHY [None]
  - BLOOD PRESSURE INADEQUATELY CONTROLLED [None]
  - CUSHING'S SYNDROME [None]
  - DRUG INTERACTION [None]
  - HYPERTRICHOSIS [None]
  - IRRITABILITY [None]
